FAERS Safety Report 9359326 (Version 1)
Quarter: 2013Q2

REPORT INFORMATION
  Report Type: Spontaneous
  Country: FR (occurrence: FR)
  Receive Date: 20130620
  Receipt Date: 20130620
  Transmission Date: 20140414
  Serious: Yes (Hospitalization)
  Sender: FDA-Public Use
  Company Number: PHHY2013FR062464

PATIENT
  Age: 83 Year
  Sex: Female

DRUGS (10)
  1. FUROSEMIDE [Suspect]
     Dosage: 2 DF, QD, IN THE MORNING
     Route: 048
     Dates: end: 20090426
  2. ALDOMET [Suspect]
     Dosage: 1 DF, TID
     Route: 048
     Dates: end: 20090427
  3. CARDENSIEL [Suspect]
     Dosage: 2 DF, QD
     Route: 048
     Dates: end: 20090427
  4. TRIATEC [Suspect]
     Dosage: 1 DF, QD
     Dates: end: 20090427
  5. DAONIL [Concomitant]
     Dosage: 3 DF, PER DAY
  6. GLUCOPHAGE [Concomitant]
     Dosage: 1 DF, BID, IN THE MORNING AND EVENING
  7. NEURONTIN [Concomitant]
     Dosage: 1 DF, TID, IN THE MORNING, NOON AND EVENING
  8. LIPANTHYL [Concomitant]
     Dosage: 1 DF, PER DAY
  9. OGASTORO [Concomitant]
  10. COUMADINE [Concomitant]
     Dosage: 2 MG

REACTIONS (5)
  - Arrhythmia [Recovered/Resolved]
  - Renal failure acute [Recovered/Resolved]
  - Hypotension [Recovered/Resolved]
  - General physical health deterioration [Recovered/Resolved]
  - Asthenia [Recovered/Resolved]
